FAERS Safety Report 8610475-X (Version None)
Quarter: 2012Q3

REPORT INFORMATION
  Report Type: 
  Country: None (occurrence: None)
  Receive Date: 20120822
  Receipt Date: 20120820
  Transmission Date: 20120928
  Serious: No
  Sender: FDA-Public Use
  Company Number: US-PFIZER INC-2012204606

PATIENT
  Age: 92 Year
  Sex: Male
  Weight: 63.492 kg

DRUGS (1)
  1. LIPITOR [Suspect]
     Dosage: 40 MG, DAILY
     Dates: start: 20110101

REACTIONS (1)
  - RASH [None]
